FAERS Safety Report 16089321 (Version 1)
Quarter: 2019Q1

REPORT INFORMATION
  Report Type: Spontaneous
  Country: US (occurrence: US)
  Receive Date: 20190215
  Receipt Date: 20190215
  Transmission Date: 20190418
  Serious: No
  Sender: FDA-Public Use
  Company Number: None

PATIENT
  Age: 86 Year
  Weight: 83.91 kg

DRUGS (1)
  1. ABIRATERONE. [Suspect]
     Active Substance: ABIRATERONE ACETATE
     Indication: PROSTATE CANCER
     Route: 048
     Dates: start: 20181203, end: 20190207

REACTIONS (3)
  - Product substitution issue [None]
  - Condition aggravated [None]
  - Prostatic specific antigen increased [None]

NARRATIVE: CASE EVENT DATE: 20190207
